FAERS Safety Report 9592835 (Version 1)
Quarter: 2013Q4

REPORT INFORMATION
  Report Type: Report from Study
  Country: EG (occurrence: EG)
  Receive Date: 20131004
  Receipt Date: 20131004
  Transmission Date: 20140711
  Serious: Yes (Other)
  Sender: FDA-Public Use
  Company Number: EG-SA-2013SA096457

PATIENT
  Age: 49 Year
  Sex: Female

DRUGS (1)
  1. LANTUS [Suspect]
     Indication: TYPE 2 DIABETES MELLITUS
     Dosage: DOSAGE: 20 IU/ DAY WHICH WAS LATER REDUCED TO 10 IU / DAY
     Route: 058
     Dates: start: 20130422, end: 20130630

REACTIONS (1)
  - Cerebral ischaemia [Recovered/Resolved]
